FAERS Safety Report 23004196 (Version 2)
Quarter: 2023Q4

REPORT INFORMATION
  Report Type: Report from Study
  Country: US (occurrence: US)
  Receive Date: 20230928
  Receipt Date: 20231013
  Transmission Date: 20240110
  Serious: Yes (Life-Threatening)
  Sender: FDA-Public Use
  Company Number: US-PFIZER INC-PV202300160331

PATIENT
  Age: 69 Year
  Sex: Female
  Weight: 72.109 kg

DRUGS (3)
  1. AVELUMAB [Suspect]
     Active Substance: AVELUMAB
     Indication: Breast cancer
     Dosage: 10 MG/KG  (720 MG ) EVERY 2 WEEKS)
     Route: 042
     Dates: start: 20230804, end: 20230901
  2. BINIMETINIB [Suspect]
     Active Substance: BINIMETINIB
     Indication: Breast cancer
     Dosage: 45 MG (3 PILLS), 2X/DAY
     Route: 048
     Dates: start: 20230720, end: 20231003
  3. DOXIL [Suspect]
     Active Substance: DOXORUBICIN HYDROCHLORIDE
     Indication: Breast cancer
     Dosage: 40 MG/M2 (75.6 MG) EVERY  4 WEEKS
     Route: 042
     Dates: start: 20230804, end: 20230804

REACTIONS (1)
  - Platelet count decreased [Not Recovered/Not Resolved]

NARRATIVE: CASE EVENT DATE: 20230921
